FAERS Safety Report 7146624-2 (Version None)
Quarter: 2010Q4

REPORT INFORMATION
  Report Type: 
  Country: None (occurrence: None)
  Receive Date: 20101208
  Receipt Date: 20101201
  Transmission Date: 20110411
  Serious: Yes (Hospitalization)
  Sender: FDA-Public Use
  Company Number: US-US-EMD SERONO, INC.-7030383

PATIENT
  Sex: Male
  Weight: 119 kg

DRUGS (4)
  1. REBIF [Suspect]
     Indication: MULTIPLE SCLEROSIS
     Route: 058
     Dates: start: 20080312
  2. METOPROLOL [Concomitant]
     Indication: HYPERTENSION
  3. LOVAZA [Concomitant]
     Indication: BLOOD TRIGLYCERIDES
  4. LORAZEPAM [Concomitant]
     Indication: ANXIETY

REACTIONS (5)
  - BLOOD COUNT ABNORMAL [None]
  - COGNITIVE DISORDER [None]
  - DEEP VEIN THROMBOSIS [None]
  - TUNNEL VISION [None]
  - WEIGHT INCREASED [None]
